FAERS Safety Report 6107339-2 (Version None)
Quarter: 2009Q1

REPORT INFORMATION
  Report Type: 
  Country: None (occurrence: None)
  Receive Date: 20090309
  Receipt Date: 20090225
  Transmission Date: 20090719
  Serious: Yes (Other)
  Sender: FDA-Public Use
  Company Number: GB-PFIZER INC-2008011288

PATIENT

DRUGS (8)
  1. SOMATROPIN [Suspect]
     Indication: HYPOPITUITARISM
     Dosage: 0.3 MG, 1X/DAY
     Dates: start: 20051213
  2. TESTOSTERONE [Concomitant]
     Dosage: 5 MG, UNK
     Route: 061
     Dates: start: 20070115
  3. ATENOLOL [Concomitant]
     Route: 048
     Dates: start: 19800701
  4. AMLODIPINE [Concomitant]
     Route: 048
     Dates: start: 20051102
  5. THYROXINE [Concomitant]
     Route: 048
     Dates: start: 20050630
  6. RAMIPRIL [Concomitant]
     Route: 048
     Dates: start: 19800701
  7. LANSOPRAZOLE [Concomitant]
     Route: 048
     Dates: start: 19950701
  8. PAROXETINE HCL [Concomitant]
     Route: 048
     Dates: start: 20020701

REACTIONS (1)
  - PITUITARY TUMOUR BENIGN [None]
